FAERS Safety Report 25467949 (Version 1)
Quarter: 2025Q2

REPORT INFORMATION
  Report Type: Spontaneous
  Country: US (occurrence: US)
  Receive Date: 20250623
  Receipt Date: 20250623
  Transmission Date: 20250717
  Serious: No
  Sender: MERCK SHARP & DOHME LLC
  Company Number: US-009507513-2292897

PATIENT

DRUGS (2)
  1. LETERMOVIR [Suspect]
     Active Substance: LETERMOVIR
     Indication: Antiviral prophylaxis
     Route: 048
  2. GANCICLOVIR [Concomitant]
     Active Substance: GANCICLOVIR
     Indication: Cytomegalovirus infection
     Route: 042

REACTIONS (1)
  - Off label use [Unknown]
